FAERS Safety Report 12929674 (Version 1)
Quarter: 2016Q4

REPORT INFORMATION
  Report Type: Spontaneous
  Country: US (occurrence: US)
  Receive Date: 20161110
  Receipt Date: 20161110
  Transmission Date: 20170207
  Serious: Yes (Other)
  Sender: FDA-Public Use
  Company Number: US-BAYER-2016-213285

PATIENT
  Age: 67 Year
  Sex: Female

DRUGS (3)
  1. BENADRYL [Concomitant]
     Active Substance: DIPHENHYDRAMINE HYDROCHLORIDE
     Dosage: 50 MG, 1 HOUR PRIOR TO TEST.
  2. PREDNISONE. [Concomitant]
     Active Substance: PREDNISONE
     Dosage: HOURS/HOUR PRIOR TO TEST
  3. GADAVIST [Suspect]
     Active Substance: GADOBUTROL
     Indication: NUCLEAR MAGNETIC RESONANCE IMAGING LIVER
     Dosage: UNK, ONCE
     Dates: start: 20161103

REACTIONS (5)
  - Erythema [None]
  - Pruritus [None]
  - Product use issue [None]
  - Periorbital oedema [None]
  - Swelling face [None]

NARRATIVE: CASE EVENT DATE: 20161103
